FAERS Safety Report 18778962 (Version 3)
Quarter: 2021Q1

REPORT INFORMATION
  Report Type: Spontaneous
  Country: JP (occurrence: JP)
  Receive Date: 20210124
  Receipt Date: 20210314
  Transmission Date: 20210419
  Serious: Yes (Other)
  Sender: FDA-Public Use
  Company Number: NVSJ2021JP001186

PATIENT
  Age: 76 Year
  Sex: Female

DRUGS (1)
  1. EQUMET [Suspect]
     Active Substance: METFORMIN HYDROCHLORIDE\VILDAGLIPTIN
     Indication: TYPE 2 DIABETES MELLITUS
     Dosage: 2 DF:METFORMIN HYDROCHLORIDE 250MG /VILDAGLIPTIN 50MG
     Route: 048
     Dates: start: 20181030

REACTIONS (2)
  - Lung neoplasm malignant [Unknown]
  - Contraindicated product administered [Unknown]
